FAERS Safety Report 8015537-6 (Version None)
Quarter: 2011Q4

REPORT INFORMATION
  Report Type: 
  Country: None (occurrence: None)
  Receive Date: 20111230
  Receipt Date: 20111222
  Transmission Date: 20120403
  Serious: Yes (Other)
  Sender: FDA-Public Use
  Company Number: US-BAYER-2011-104574

PATIENT
  Age: 81 Year
  Sex: Female
  Weight: 54.3 kg

DRUGS (10)
  1. LISINOPRIL [Concomitant]
     Route: 048
  2. HUMALOG [Concomitant]
     Dosage: 1 UNIT
     Route: 058
  3. MULTIPLE VITAMINS [Concomitant]
  4. LANTUS [Concomitant]
     Dosage: 10 UNITS
     Route: 058
  5. SYNTHROID [Concomitant]
     Route: 048
  6. GLUCOPHAGE [Concomitant]
     Route: 048
  7. METOPROLOL TARTRATE [Concomitant]
  8. SIMVASTATIN [Concomitant]
     Route: 048
  9. ACETYLSALICYLIC ACID SRT [Suspect]
  10. RIVAROXABAN [Suspect]
     Indication: HIP SURGERY
     Dosage: 10 MG, QD
     Route: 048
     Dates: start: 20111011, end: 20111012

REACTIONS (1)
  - HAEMORRHAGIC ANAEMIA [None]
